FAERS Safety Report 8165734-4 (Version None)
Quarter: 2012Q1

REPORT INFORMATION
  Report Type: 
  Country: None (occurrence: None)
  Receive Date: 20120227
  Receipt Date: 20110131
  Transmission Date: 20120608
  Serious: No
  Sender: FDA-Public Use
  Company Number: US-MYLANLABS-2011S1000707

PATIENT
  Age: 17 Year
  Sex: Male
  Weight: 92.99 kg

DRUGS (1)
  1. AMNESTEEM [Suspect]
     Indication: ACNE
     Dates: start: 20101027, end: 20101220

REACTIONS (1)
  - PERSONALITY CHANGE [None]
